FAERS Safety Report 5234157-X (Version None)
Quarter: 2007Q1

REPORT INFORMATION
  Report Type: 
  Country: None (occurrence: None)
  Receive Date: 20070209
  Receipt Date: 20070129
  Transmission Date: 20070707
  Serious: Yes (Hospitalization)
  Sender: FDA-Public Use
  Company Number: GB-ABBOTT-06P-167-0347775-00

PATIENT
  Sex: Female
  Weight: 68 kg

DRUGS (7)
  1. HUMIRA [Suspect]
     Indication: RHEUMATOID ARTHRITIS
     Dates: start: 20050503, end: 20050809
  2. HUMIRA [Suspect]
     Dates: start: 20051113, end: 20051129
  3. PARAMOL-118 [Concomitant]
     Indication: DRUG USE FOR UNKNOWN INDICATION
  4. NAPROXEN [Concomitant]
     Indication: DRUG USE FOR UNKNOWN INDICATION
  5. FELBINAC [Concomitant]
     Indication: DRUG USE FOR UNKNOWN INDICATION
  6. CARBOMER [Concomitant]
     Indication: DRUG USE FOR UNKNOWN INDICATION
  7. CALCIUM CARBONATE [Concomitant]
     Indication: DRUG USE FOR UNKNOWN INDICATION

REACTIONS (2)
  - SINUSITIS [None]
  - WHITE BLOOD CELL COUNT DECREASED [None]
